FAERS Safety Report 7744782-X (Version None)
Quarter: 2011Q3

REPORT INFORMATION
  Report Type: 
  Country: None (occurrence: None)
  Receive Date: 20110912
  Receipt Date: 20110912
  Transmission Date: 20111222
  Serious: Yes (Life-Threatening, Hospitalization)
  Sender: FDA-Public Use
  Company Number: None

PATIENT
  Age: 37 Year
  Sex: Female
  Weight: 60 kg

DRUGS (13)
  1. REMICADE [Suspect]
     Indication: COLITIS ULCERATIVE
     Dosage: UNKNOWN, GIVEN AT EMERSON HOSP
     Route: 042
     Dates: start: 20110801, end: 20110801
  2. TYLENOL-500 [Concomitant]
  3. DILAUDID [Concomitant]
     Route: 042
  4. KLONOPIN [Concomitant]
  5. ZOLOFT [Concomitant]
  6. DILAUDID [Concomitant]
  7. ZOFRAN [Concomitant]
     Route: 042
  8. INSULIN LISPRO [Concomitant]
  9. SOLU-MEDROL [Concomitant]
     Route: 042
  10. HEPARIN [Concomitant]
  11. FLAGYL [Concomitant]
     Route: 048
  12. STRATTERA [Concomitant]
  13. AMBIEN [Concomitant]

REACTIONS (4)
  - ANXIETY [None]
  - PNEUMONIA LEGIONELLA [None]
  - PNEUMOCYSTIS JIROVECI PNEUMONIA [None]
  - ACUTE RESPIRATORY DISTRESS SYNDROME [None]
